FAERS Safety Report 20628811 (Version 1)
Quarter: 2022Q1

REPORT INFORMATION
  Report Type: Spontaneous
  Country: FI (occurrence: FI)
  Receive Date: 20220323
  Receipt Date: 20220323
  Transmission Date: 20220424
  Serious: Yes (Other)
  Sender: FDA-Public Use
  Company Number: FI-TEVA-2022-FI-2020885

PATIENT
  Age: 86 Year
  Sex: Male

DRUGS (1)
  1. TAMSULOSIN [Suspect]
     Active Substance: TAMSULOSIN
     Dosage: .4 MILLIGRAM DAILY; MORNING

REACTIONS (4)
  - Urinary retention [Unknown]
  - Urinary tract disorder [Unknown]
  - Pollakiuria [Unknown]
  - Urinary incontinence [Unknown]
